FAERS Safety Report 8289167-5 (Version None)
Quarter: 2012Q2

REPORT INFORMATION
  Report Type: 
  Country: None (occurrence: None)
  Receive Date: 20120417
  Receipt Date: 20120402
  Transmission Date: 20120825
  Serious: Yes (Hospitalization, Other)
  Sender: FDA-Public Use
  Company Number: PHEH2009US07986

PATIENT
  Sex: Female

DRUGS (2)
  1. GLEEVEC [Suspect]
     Indication: CARCINOID TUMOUR OF THE DUODENUM
     Dosage: 400 MG, DAILY
     Route: 048
     Dates: start: 20090202
  2. GLEEVEC [Suspect]
     Dosage: 400 MG, QD
     Route: 048

REACTIONS (4)
  - PROCEDURAL COMPLICATION [None]
  - ABDOMINAL DISCOMFORT [None]
  - VIRAL INFECTION [None]
  - SMALL INTESTINAL OBSTRUCTION [None]
